FAERS Safety Report 16750636 (Version 1)
Quarter: 2019Q3

REPORT INFORMATION
  Report Type: Spontaneous
  Country: CA (occurrence: CA)
  Receive Date: 20190828
  Receipt Date: 20190828
  Transmission Date: 20191005
  Serious: Yes (Hospitalization, Other)
  Sender: FDA-Public Use
  Company Number: CA-PFIZER INC-2019364859

PATIENT
  Age: 62 Year
  Sex: Male

DRUGS (14)
  1. DEXAMETHASONE. [Concomitant]
     Active Substance: DEXAMETHASONE
     Indication: NAUSEA
     Dosage: UNK
  2. IMODIUM [Concomitant]
     Active Substance: LOPERAMIDE HYDROCHLORIDE
     Indication: DIARRHOEA
     Dosage: UNK
  3. PROCHLORPERAZINE. [Concomitant]
     Active Substance: PROCHLORPERAZINE
     Indication: NAUSEA
     Dosage: UNK
  4. GEMCITABINE HYDROCHLORIDE. [Suspect]
     Active Substance: GEMCITABINE HYDROCHLORIDE
     Indication: PANCREATIC CARCINOMA
     Dosage: UNK [3 EVERY 4 WEEK(S)]
     Route: 041
  5. HYDROMORPH CONTIN [Concomitant]
     Active Substance: HYDROMORPHONE
     Indication: ABDOMINAL PAIN
     Dosage: UNK
  6. OLANZAPINE. [Concomitant]
     Active Substance: OLANZAPINE
     Indication: NAUSEA
     Dosage: UNK
  7. TICILIMUMAB [Suspect]
     Active Substance: TREMELIMUMAB
     Indication: PANCREATIC CARCINOMA
     Dosage: 75 MG, UNK [1 EVERY 4 WEEK(S)]
     Route: 041
  8. ABRAXANE [Suspect]
     Active Substance: PACLITAXEL
     Indication: PANCREATIC CARCINOMA
     Dosage: UNK [3 EVERY 28 DAY(S)]
     Route: 041
  9. GLICLAZIDE [Concomitant]
     Active Substance: GLICLAZIDE
     Indication: DIABETES MELLITUS
     Dosage: UNK
  10. HYDROMORPHONE HYDROCHLORIDE. [Concomitant]
     Active Substance: HYDROMORPHONE HYDROCHLORIDE
     Indication: ABDOMINAL PAIN
     Dosage: UNK
  11. PANTOLOC [PANTOPRAZOLE] [Concomitant]
     Active Substance: PANTOPRAZOLE SODIUM
     Indication: GASTROOESOPHAGEAL REFLUX DISEASE
     Dosage: UNK
  12. SENOKOT [Concomitant]
     Active Substance: SENNOSIDES
     Indication: CONSTIPATION
     Dosage: UNK
  13. DURVALUMAB. [Suspect]
     Active Substance: DURVALUMAB
     Indication: PANCREATIC CARCINOMA
     Dosage: 1500 MG, UNK [1 EVERY 4 WEEK(S)]
     Route: 041
  14. PANCREATIN [Concomitant]
     Active Substance: PANCRELIPASE
     Indication: NUTRITIONAL SUPPLEMENTATION
     Dosage: UNK

REACTIONS (1)
  - Lung infection [Not Recovered/Not Resolved]
